FAERS Safety Report 6694530-X (Version None)
Quarter: 2010Q2

REPORT INFORMATION
  Report Type: 
  Country: None (occurrence: None)
  Receive Date: 20100420
  Receipt Date: 20100412
  Transmission Date: 20101027
  Serious: Yes (Other)
  Sender: FDA-Public Use
  Company Number: B0647568A

PATIENT

DRUGS (2)
  1. DIGOXIN [Suspect]
     Indication: TACHYCARDIA FOETAL
     Dosage: .5 MG/ PER DAY / TRANSPLACENTARY
     Route: 064
  2. AMIODARONE (FORMULATION UNKNOWN) (AMIODRARONE) [Suspect]
     Indication: TACHYCARDIA FOETAL
     Dosage: TRANCENTARY
     Route: 064

REACTIONS (13)
  - ATAXIA [None]
  - CARDIOMEGALY [None]
  - DRUG EXPOSURE DURING PREGNANCY [None]
  - FOOT DEFORMITY [None]
  - GROSS MOTOR DELAY [None]
  - HYPOTONIA [None]
  - MATERNAL DRUGS AFFECTING FOETUS [None]
  - MOTOR DEVELOPMENTAL DELAY [None]
  - NERVOUS SYSTEM DISORDER [None]
  - NEURODEVELOPMENTAL DISORDER [None]
  - SPEECH DISORDER DEVELOPMENTAL [None]
  - THYROID DISORDER [None]
  - TOXIC NEUROPATHY [None]
